FAERS Safety Report 7539579-X (Version None)
Quarter: 2011Q2

REPORT INFORMATION
  Report Type: 
  Country: None (occurrence: None)
  Receive Date: 20110608
  Receipt Date: 20110608
  Transmission Date: 20111010
  Serious: Yes (Disabling, Other)
  Sender: FDA-Public Use
  Company Number: None

PATIENT
  Age: 23 Year
  Sex: Female
  Weight: 56.6996 kg

DRUGS (1)
  1. TERBUTALINE [Suspect]

REACTIONS (4)
  - CHEST PAIN [None]
  - PRESYNCOPE [None]
  - PALPITATIONS [None]
  - HEART RATE INCREASED [None]
